FAERS Safety Report 16452622 (Version 1)
Quarter: 2019Q2

REPORT INFORMATION
  Report Type: Spontaneous
  Country: US (occurrence: US)
  Receive Date: 20190619
  Receipt Date: 20190619
  Transmission Date: 20190711
  Serious: No
  Sender: FDA-Public Use
  Company Number: US-SA-2014SA130208

PATIENT
  Age: 93 Year
  Sex: Female

DRUGS (3)
  1. APIDRA SOLOSTAR [Suspect]
     Active Substance: INSULIN GLULISINE
     Indication: TYPE 2 DIABETES MELLITUS
     Dosage: 5 DF,HS
     Route: 065
     Dates: start: 20140916
  2. LANTUS SOLOSTAR [Suspect]
     Active Substance: INSULIN GLARGINE
     Indication: TYPE 2 DIABETES MELLITUS
     Dosage: 13 DF,QD
     Route: 065
     Dates: start: 2013
  3. LANTUS SOLOSTAR [Suspect]
     Active Substance: INSULIN GLARGINE
     Indication: DIABETES MELLITUS
     Dosage: 13 U, HS
     Route: 065

REACTIONS (4)
  - Incorrect dose administered by device [Recovered/Resolved]
  - Blood glucose increased [Unknown]
  - Device issue [Recovered/Resolved]
  - Injection site pain [Unknown]
